FAERS Safety Report 16348000 (Version 1)
Quarter: 2019Q2

REPORT INFORMATION
  Report Type: Spontaneous
  Country: US (occurrence: US)
  Receive Date: 20190523
  Receipt Date: 20190523
  Transmission Date: 20190711
  Serious: No
  Sender: FDA-Public Use
  Company Number: US-IGSA-SR10007574

PATIENT
  Age: 14 Year
  Sex: Male
  Weight: 60 kg

DRUGS (1)
  1. GAMUNEX-C [Suspect]
     Active Substance: HUMAN IMMUNOGLOBULIN G
     Indication: IMMUNODEFICIENCY
     Dosage: 33 G, UNK
     Route: 042
     Dates: start: 201706

REACTIONS (1)
  - Rash [Unknown]

NARRATIVE: CASE EVENT DATE: 20181214
